FAERS Safety Report 5658491-4 (Version None)
Quarter: 2008Q1

REPORT INFORMATION
  Report Type: 
  Country: None (occurrence: None)
  Receive Date: 20080310
  Receipt Date: 20070216
  Transmission Date: 20080703
  Serious: No
  Sender: FDA-Public Use
  Company Number: US-BAYER-200710534BCC

PATIENT
  Sex: Male
  Weight: 78 kg

DRUGS (2)
  1. ALEVE [Suspect]
     Indication: MUSCLE STRAIN
     Route: 048
  2. WALMART BRAND MULTIVITAMIN [Concomitant]

REACTIONS (2)
  - MUSCLE STRAIN [None]
  - MYALGIA [None]
